FAERS Safety Report 19126256 (Version 1)
Quarter: 2021Q2

REPORT INFORMATION
  Report Type: Spontaneous
  Country: US (occurrence: US)
  Receive Date: 20210412
  Receipt Date: 20210412
  Transmission Date: 20210717
  Serious: Yes (Death)
  Sender: FDA-Public Use
  Company Number: None

PATIENT
  Age: 61 Year
  Sex: Female

DRUGS (9)
  1. ACETAMIN [Concomitant]
     Active Substance: ACETAMINOPHEN
  2. LORAZEPAM. [Concomitant]
     Active Substance: LORAZEPAM
  3. PIQRAY [Suspect]
     Active Substance: ALPELISIB
     Indication: BREAST CANCER FEMALE
     Dosage: TAKE ONE TABLET OF 200 MG AND 1 TABLET OF 50 MG (250 MG TOTAL) PO QD
     Route: 048
     Dates: start: 20200623
  4. LISINOPRIL. [Concomitant]
     Active Substance: LISINOPRIL
  5. HYOSCYAMINE. [Concomitant]
     Active Substance: HYOSCYAMINE
  6. PROCHLORPER [Concomitant]
  7. HYDROCHLOROT [Concomitant]
     Active Substance: HYDROCHLOROTHIAZIDE
  8. MORPHINE SUL [Concomitant]
     Active Substance: MORPHINE SULFATE
  9. ONDANSETRON [Concomitant]
     Active Substance: ONDANSETRON

REACTIONS (1)
  - Death [None]

NARRATIVE: CASE EVENT DATE: 20210412
